FAERS Safety Report 4684015-4 (Version None)
Quarter: 2005Q2

REPORT INFORMATION
  Report Type: 
  Country: None (occurrence: None)
  Receive Date: 20050602
  Receipt Date: 20050121
  Transmission Date: 20051028
  Serious: No
  Sender: FDA-Public Use
  Company Number: USA050188961

PATIENT
  Age: 35 Year
  Sex: Female
  Weight: 52 kg

DRUGS (6)
  1. CYMBALTA [Suspect]
     Indication: FIBROMYALGIA
     Dosage: 60 MG DAY
  2. PREDNISONE [Concomitant]
  3. AMBIEN [Concomitant]
  4. ZELNORM [Concomitant]
  5. PULMICORT [Concomitant]
  6. NEURONTIN (GABAPENTIN PFIZER) [Concomitant]

REACTIONS (4)
  - ANOREXIA [None]
  - DECREASED APPETITE [None]
  - MUSCLE TWITCHING [None]
  - WEIGHT DECREASED [None]
